FAERS Safety Report 7699621-2 (Version None)
Quarter: 2011Q3

REPORT INFORMATION
  Report Type: 
  Country: None (occurrence: None)
  Receive Date: 20110822
  Receipt Date: 20110815
  Transmission Date: 20111222
  Serious: No
  Sender: FDA-Public Use
  Company Number: US-BIOGENIDEC-2011BI009623

PATIENT
  Age: 58 Year
  Sex: Female

DRUGS (4)
  1. TYSABRI [Suspect]
     Route: 042
     Dates: start: 20081001, end: 20100629
  2. TYSABRI [Suspect]
     Route: 042
     Dates: start: 20061127, end: 20080807
  3. TYSABRI [Suspect]
     Indication: MULTIPLE SCLEROSIS
     Route: 042
     Dates: start: 20110112, end: 20110309
  4. AVONEX [Concomitant]
     Indication: MULTIPLE SCLEROSIS
     Route: 030
     Dates: start: 20011201

REACTIONS (15)
  - GAIT DISTURBANCE [None]
  - TEMPERATURE INTOLERANCE [None]
  - COGNITIVE DISORDER [None]
  - ANXIETY [None]
  - CRYING [None]
  - FEELING ABNORMAL [None]
  - TREMOR [None]
  - RESPIRATORY TRACT INFECTION [None]
  - FATIGUE [None]
  - HYPERTENSION [None]
  - PAIN [None]
  - MULTIPLE ALLERGIES [None]
  - COORDINATION ABNORMAL [None]
  - TRANSIENT ISCHAEMIC ATTACK [None]
  - BRONCHITIS [None]
